FAERS Safety Report 4437342-X (Version None)
Quarter: 2004Q3

REPORT INFORMATION
  Report Type: 
  Country: None (occurrence: None)
  Receive Date: 20040726
  Receipt Date: 20040507
  Transmission Date: 20050211
  Serious: No
  Sender: FDA-Public Use
  Company Number: USA040363262

PATIENT
  Age: 62 Year
  Sex: Female

DRUGS (5)
  1. FORTEO [Suspect]
     Indication: OSTEOPOROSIS
     Dosage: 20 UG DAY
     Dates: start: 20030620
  2. CALCIUM [Concomitant]
  3. NORVASC [Concomitant]
  4. CENTRUM [Concomitant]
  5. FOSAMAX [Concomitant]

REACTIONS (1)
  - BLOOD CALCIUM INCREASED [None]
